FAERS Safety Report 4380953-0 (Version None)
Quarter: 2004Q2

REPORT INFORMATION
  Report Type: 
  Country: None (occurrence: None)
  Receive Date: 20040618
  Receipt Date: 20040305
  Transmission Date: 20050107
  Serious: Yes (Other)
  Sender: FDA-Public Use
  Company Number: US-MERCK-0403USA00627

PATIENT
  Age: 67 Year
  Sex: Female

DRUGS (20)
  1. ULTRACET [Concomitant]
     Route: 065
  2. TRACLEER [Suspect]
     Indication: PULMONARY HYPERTENSION
     Route: 048
     Dates: start: 20030501, end: 20030601
  3. TRACLEER [Suspect]
     Route: 065
     Dates: start: 20030601, end: 20031104
  4. TRACLEER [Suspect]
     Route: 065
     Dates: start: 20031124, end: 20031231
  5. TRACLEER [Suspect]
     Route: 065
     Dates: start: 20040301
  6. TRACLEER [Suspect]
     Indication: SCLERODERMA
     Route: 048
     Dates: start: 20030501, end: 20030601
  7. TRACLEER [Suspect]
     Route: 065
     Dates: start: 20030601, end: 20031104
  8. TRACLEER [Suspect]
     Route: 065
     Dates: start: 20031124, end: 20031231
  9. TRACLEER [Suspect]
     Route: 065
     Dates: start: 20040301
  10. PLAVIX [Concomitant]
     Route: 065
  11. CYTOXAN [Concomitant]
     Route: 065
  12. ZETIA [Suspect]
     Route: 048
     Dates: start: 20031001, end: 20031231
  13. LASIX [Concomitant]
     Route: 065
  14. IRON (UNSPECIFIED) [Concomitant]
     Route: 065
  15. PRINIVIL [Concomitant]
     Route: 048
  16. ATIVAN [Concomitant]
     Route: 065
  17. MEVACOR [Concomitant]
     Route: 048
  18. REGLAN [Concomitant]
     Route: 065
  19. METOPROLOL [Concomitant]
     Route: 065
  20. PREDNISONE [Concomitant]
     Route: 065

REACTIONS (4)
  - ALANINE AMINOTRANSFERASE INCREASED [None]
  - ASPARTATE AMINOTRANSFERASE INCREASED [None]
  - BLOOD ALKALINE PHOSPHATASE INCREASED [None]
  - LIVER FUNCTION TEST ABNORMAL [None]
